FAERS Safety Report 6132465-1 (Version None)
Quarter: 2009Q1

REPORT INFORMATION
  Report Type: 
  Country: None (occurrence: None)
  Receive Date: 20090325
  Receipt Date: 20090320
  Transmission Date: 20090719
  Serious: Yes (Other)
  Sender: FDA-Public Use
  Company Number: FR-B.I. PHARMACEUTICALS,INC./RIDGEFIELD-2009-DE-02414BY

PATIENT
  Age: 55 Year
  Sex: Male

DRUGS (1)
  1. TELMISARTAN [Suspect]

REACTIONS (1)
  - COLITIS [None]
